FAERS Safety Report 8324385-9 (Version None)
Quarter: 2012Q1

REPORT INFORMATION
  Report Type: 
  Country: None (occurrence: None)
  Receive Date: 20120315
  Receipt Date: 20110607
  Transmission Date: 20120608
  Serious: No
  Sender: FDA-Public Use
  Company Number: PHHY2011US43582

PATIENT
  Age: 42 Year
  Sex: Female
  Weight: 90.3 kg

DRUGS (12)
  1. MEDROL [Suspect]
  2. CELEXA [Concomitant]
  3. MULTIVITAMIN [Suspect]
     Dosage: 1 DF, DAILY
     Dates: start: 20110406
  4. VITAMIN D [Concomitant]
  5. BACLOFEN [Concomitant]
  6. IBUPROFEN [Concomitant]
  7. STEROIDS NOS (NO INGREDIENTS/SUBSTANCES) [Concomitant]
  8. GLIENYA (FTY) CAPSULE [Suspect]
     Indication: MULTIPLE SCLEROSIS
     Dosage: 0.5 MG, QD, ORAL
     Route: 048
     Dates: start: 20110503
  9. METFORMIN HCL [Concomitant]
  10. INTERFERON BETA-1B (INTERFERON BETA-1B) [Concomitant]
  11. AMANTADINE HYDROCHLORIDE (AMANADINE HYDROCHLORIDE) [Concomitant]
  12. VALIUM [Suspect]
     Dosage: 1 DF, ORAL
     Route: 048

REACTIONS (3)
  - BLOOD PRESSURE DECREASED [None]
  - VISION BLURRED [None]
  - HEADACHE [None]
